FAERS Safety Report 19282925 (Version 2)
Quarter: 2021Q2

REPORT INFORMATION
  Report Type: Report from Study
  Country: US (occurrence: US)
  Receive Date: 20210520
  Receipt Date: 20210622
  Transmission Date: 20210717
  Serious: Yes (Other)
  Sender: FDA-Public Use
  Company Number: US-UCBSA-2021022907

PATIENT
  Age: 62 Year
  Sex: Female
  Weight: 68 kg

DRUGS (3)
  1. LACOSAMIDE. [Suspect]
     Active Substance: LACOSAMIDE
     Indication: SEIZURE
     Dosage: 250 MILLIGRAM, 2X/DAY (BID)
     Route: 048
     Dates: start: 201702
  2. LACOSAMIDE. [Suspect]
     Active Substance: LACOSAMIDE
     Indication: EPILEPSY
  3. ROSUVASTATIN. [Concomitant]
     Active Substance: ROSUVASTATIN
     Indication: BLOOD CHOLESTEROL
     Dosage: 10 MILLIGRAM, ONCE DAILY (QD)
     Route: 048

REACTIONS (2)
  - Prescribed overdose [Unknown]
  - Carotid artery occlusion [Not Recovered/Not Resolved]

NARRATIVE: CASE EVENT DATE: 201702
